FAERS Safety Report 7332575-7 (Version None)
Quarter: 2011Q1

REPORT INFORMATION
  Report Type: 
  Country: None (occurrence: None)
  Receive Date: 20110228
  Receipt Date: 20110228
  Transmission Date: 20110831
  Serious: Yes (Death, Disabling)
  Sender: FDA-Public Use
  Company Number: None

PATIENT
  Age: 38 Year
  Sex: Male

DRUGS (1)
  1. MULTIHANCE [Suspect]
     Indication: PERIPHERAL ISCHAEMIA
     Dosage: INTRAVENOUS
     Route: 042
     Dates: start: 20100129

REACTIONS (2)
  - NEPHROGENIC SYSTEMIC FIBROSIS [None]
  - SKIN ULCER [None]
